FAERS Safety Report 4761440-4 (Version None)
Quarter: 2005Q3

REPORT INFORMATION
  Report Type: 
  Country: None (occurrence: None)
  Receive Date: 20050901
  Receipt Date: 20050901
  Transmission Date: 20060218
  Serious: Yes (Life-Threatening)
  Sender: FDA-Public Use
  Company Number: None

PATIENT
  Age: 55 Year
  Sex: Female

DRUGS (6)
  1. ZIPRASIDONE HCL [Suspect]
     Dosage: 120 MG   BID
  2. LEVOTHYROXINE -SYNTHROID(R)- [Concomitant]
  3. LAMOTRIGINE -LAMICTAL(R)- [Concomitant]
  4. LITHIUM -ESKALITH(R)- [Concomitant]
  5. CLONAZEPAM -KLONOPIN(R)- [Concomitant]
  6. ESCITALOPRAM -LEXAPRO(R)- [Concomitant]

REACTIONS (10)
  - BLOOD CREATININE INCREASED [None]
  - DEPRESSED LEVEL OF CONSCIOUSNESS [None]
  - DIARRHOEA [None]
  - GRAND MAL CONVULSION [None]
  - HEART RATE INCREASED [None]
  - HYPONATRAEMIA [None]
  - INCORRECT DOSE ADMINISTERED [None]
  - NEUROLEPTIC MALIGNANT SYNDROME [None]
  - SEROTONIN SYNDROME [None]
  - WHITE BLOOD CELL COUNT INCREASED [None]
